FAERS Safety Report 18588737 (Version 2)
Quarter: 2020Q4

REPORT INFORMATION
  Report Type: Report from Study
  Country: None (occurrence: BE)
  Receive Date: 20201207
  Receipt Date: 20201221
  Transmission Date: 20210114
  Serious: Yes (Hospitalization, Other)
  Sender: FDA-Public Use
  Company Number: BE-ABBVIE-20K-013-3674961-00

PATIENT
  Age: 76 Year
  Sex: Male
  Weight: 70 kg

DRUGS (10)
  1. DUODOPA [Suspect]
     Active Substance: CARBIDOPA\LEVODOPA
     Indication: PARKINSON^S DISEASE
     Route: 050
     Dates: start: 20190311, end: 20200611
  2. DUODOPA [Suspect]
     Active Substance: CARBIDOPA\LEVODOPA
     Dosage: MD= 3.0 ML, CD= 2.8 ML/HR DURING 16HRS, ED= 1.5 ML
     Route: 050
     Dates: start: 20200611, end: 20200806
  3. DUODOPA [Suspect]
     Active Substance: CARBIDOPA\LEVODOPA
     Dosage: MD= 2.0 ML, CD= 2.8 ML/HR DURING 16HRS, ED= 1.5 ML
     Route: 050
     Dates: start: 20200806, end: 20201015
  4. BISOPROLOL [Concomitant]
     Active Substance: BISOPROLOL
     Indication: PRODUCT USED FOR UNKNOWN INDICATION
  5. DUODOPA [Suspect]
     Active Substance: CARBIDOPA\LEVODOPA
     Dosage: MD= 2.0 ML, CD= 2.7 ML/HR DURING 16HRS, ED= 1.5 ML
     Route: 050
     Dates: start: 20201015, end: 20201215
  6. LIXIANA [Concomitant]
     Active Substance: EDOXABAN TOSYLATE
     Indication: PRODUCT USED FOR UNKNOWN INDICATION
  7. APOCARD [Concomitant]
     Active Substance: FLECAINIDE ACETATE
     Indication: PRODUCT USED FOR UNKNOWN INDICATION
  8. XANAX [Concomitant]
     Active Substance: ALPRAZOLAM
     Indication: PRODUCT USED FOR UNKNOWN INDICATION
  9. DUODOPA [Suspect]
     Active Substance: CARBIDOPA\LEVODOPA
     Dosage: MD= 2.0 ML, CD= 2.6 ML/HR DURING 16HRS, ED= 1.5 ML
     Route: 050
     Dates: start: 20201215
  10. SIMVASTATINE [Concomitant]
     Active Substance: SIMVASTATIN
     Indication: PRODUCT USED FOR UNKNOWN INDICATION

REACTIONS (3)
  - Haemorrhage [Unknown]
  - Confusional state [Unknown]
  - Fall [Recovered/Resolved]

NARRATIVE: CASE EVENT DATE: 20201128
